FAERS Safety Report 24996347 (Version 1)
Quarter: 2025Q1

REPORT INFORMATION
  Report Type: Spontaneous
  Country: US (occurrence: US)
  Receive Date: 20250221
  Receipt Date: 20250221
  Transmission Date: 20250409
  Serious: Yes (Other)
  Sender: PHARMING GROUP
  Company Number: US-PHARMING-PHAUS2025000260

PATIENT

DRUGS (1)
  1. RUCONEST [Suspect]
     Active Substance: CONESTAT ALFA
     Indication: Hereditary angioedema with C1 esterase inhibitor deficiency
     Route: 042
     Dates: start: 2018

REACTIONS (3)
  - Arrhythmia [Unknown]
  - Syncope [Unknown]
  - Product use in unapproved indication [Unknown]
